FAERS Safety Report 7380559-5 (Version None)
Quarter: 2011Q1

REPORT INFORMATION
  Report Type: 
  Country: None (occurrence: None)
  Receive Date: 20110321
  Receipt Date: 20110309
  Transmission Date: 20110831
  Serious: Yes (Hospitalization, Other)
  Sender: FDA-Public Use
  Company Number: D1100919

PATIENT
  Age: 77 Year
  Sex: Female

DRUGS (11)
  1. SPIRONOLACTONE [Concomitant]
  2. NEXIUM [Concomitant]
  3. DIGOXIN [Concomitant]
  4. B COMPLEX (PYRIDOXINE HYDROCHLORIDE, THIAMINE HYDROCHLORIDE, RIBOFLAVI [Concomitant]
  5. ZINIC (ZINIC) [Concomitant]
  6. LASIX [Suspect]
     Indication: RENAL DISORDER
     Dosage: 1 IN 1 D, ORAL
     Route: 048
     Dates: start: 20080601
  7. CALCIUM PLUS MAGNESIUM (MAGNESIUM, CALCIUM) [Concomitant]
  8. LIPITOR [Concomitant]
  9. DARVOCET-N (PROPOXYPHENE, PARACETAMOL) [Concomitant]
  10. ASPIRIN [Concomitant]
  11. JANTOVEN [Suspect]
     Indication: PRODUCT USED FOR UNKNOWN INDICATION
     Dosage: 1/2 TABLET, QD TUESDAY AND THURSDAY, ORAL
     Route: 048
     Dates: start: 20080601

REACTIONS (22)
  - RENAL FAILURE [None]
  - HAEMATEMESIS [None]
  - HEPATIC CYST [None]
  - PANCREATIC CYST [None]
  - RENAL ISCHAEMIA [None]
  - BLOOD PRESSURE DIASTOLIC DECREASED [None]
  - CORONARY ARTERY DISEASE [None]
  - SINUS TACHYCARDIA [None]
  - WEIGHT DECREASED [None]
  - CORONARY ARTERY OCCLUSION [None]
  - NIGHT SWEATS [None]
  - DIVERTICULITIS [None]
  - ATRIAL FIBRILLATION [None]
  - HAEMOPTYSIS [None]
  - MYOCARDIAL INFARCTION [None]
  - PANCREATIC ATROPHY [None]
  - CARDIAC FAILURE CONGESTIVE [None]
  - LEFT ATRIAL DILATATION [None]
  - HAEMORRHOIDAL HAEMORRHAGE [None]
  - HEART RATE IRREGULAR [None]
  - INTERNATIONAL NORMALISED RATIO INCREASED [None]
  - MITRAL VALVE INCOMPETENCE [None]
